FAERS Safety Report 21195248 (Version 1)
Quarter: 2022Q3

REPORT INFORMATION
  Report Type: Spontaneous
  Country: US (occurrence: None)
  Receive Date: 20220809
  Receipt Date: 20220809
  Transmission Date: 20221027
  Serious: Yes (Other)
  Sender: FDA-Public Use
  Company Number: None

PATIENT
  Sex: Female

DRUGS (14)
  1. NORDITROPIN [Suspect]
     Active Substance: SOMATROPIN
     Indication: Hyperpituitarism
  2. AMARYL TAB [Concomitant]
  3. CALTRATE [Concomitant]
     Active Substance: CALCIUM CARBONATE
  4. FARXIGA [Concomitant]
  5. A-HYDROCORT [Concomitant]
     Active Substance: HYDROCORTISONE SODIUM SUCCINATE
  6. LEVOTHYROXIN TAB [Concomitant]
  7. LEXAPRO [Concomitant]
     Active Substance: ESCITALOPRAM OXALATE
  8. MULT0VIT [Concomitant]
  9. SYNTHROID TAB [Concomitant]
  10. TRADJENTA [Concomitant]
     Active Substance: LINAGLIPTIN
  11. TRESIBA FLE INJ [Concomitant]
  12. HYDROCHLOROTHIAZIDE\TRIAMTERENE [Concomitant]
     Active Substance: HYDROCHLOROTHIAZIDE\TRIAMTERENE
  13. VICTOZA INJ [Concomitant]
  14. VITAMIN D CAP [Concomitant]

REACTIONS (2)
  - Cerebrovascular accident [None]
  - Therapy interrupted [None]
